FAERS Safety Report 17070366 (Version 1)
Quarter: 2019Q4

REPORT INFORMATION
  Report Type: Spontaneous
  Country: DE (occurrence: DE)
  Receive Date: 20191125
  Receipt Date: 20191125
  Transmission Date: 20200122
  Serious: Yes (Other)
  Sender: FDA-Public Use
  Company Number: DE-BAYER-2019-205877

PATIENT
  Age: 44 Year
  Sex: Female
  Weight: 60 kg

DRUGS (1)
  1. CIPROBAY 250 MG [Suspect]
     Active Substance: CIPROFLOXACIN
     Dosage: 2 DF, QD
     Dates: start: 20120424, end: 20120501

REACTIONS (4)
  - Neuralgia [None]
  - Neuropathy peripheral [None]
  - Coronary artery dissection [None]
  - Headache [None]

NARRATIVE: CASE EVENT DATE: 20120501
